FAERS Safety Report 17892535 (Version 1)
Quarter: 2020Q2

REPORT INFORMATION
  Report Type: Spontaneous
  Country: GB (occurrence: GB)
  Receive Date: 20200612
  Receipt Date: 20200612
  Transmission Date: 20200714
  Serious: Yes (Other)
  Sender: FDA-Public Use
  Company Number: GB-SAMSUNG BIOEPIS-SB-2020-19283

PATIENT
  Sex: Female

DRUGS (2)
  1. IMRALDI [Suspect]
     Active Substance: ADALIMUMAB
     Indication: PRODUCT USED FOR UNKNOWN INDICATION
     Dosage: UNKNOWN
     Route: 065
  2. HUMIRA [Suspect]
     Active Substance: ADALIMUMAB
     Indication: RHEUMATOID ARTHRITIS
     Route: 058
     Dates: start: 2000

REACTIONS (13)
  - Hip fracture [Unknown]
  - Dry skin [Recovering/Resolving]
  - Asthenia [Unknown]
  - Malaise [Unknown]
  - Rash erythematous [Recovering/Resolving]
  - Pain [Recovering/Resolving]
  - Transfusion [Unknown]
  - Arthralgia [Unknown]
  - Type 2 diabetes mellitus [Unknown]
  - Herpes zoster [Unknown]
  - Weight decreased [Unknown]
  - Throat irritation [Unknown]
  - Rash [Recovering/Resolving]

NARRATIVE: CASE EVENT DATE: 2018
